FAERS Safety Report 4279228-X (Version None)
Quarter: 2004Q1

REPORT INFORMATION
  Report Type: 
  Country: None (occurrence: None)
  Receive Date: 20040123
  Receipt Date: 20040113
  Transmission Date: 20041129
  Serious: Yes (Other)
  Sender: FDA-Public Use
  Company Number: 2003124679

PATIENT
  Age: 74 Year
  Sex: Female

DRUGS (8)
  1. LIPITOR [Suspect]
     Indication: BLOOD CHOLESTEROL INCREASED
     Dosage: 10 MG (DAILY), ORAL
     Route: 048
     Dates: start: 20030801, end: 20031101
  2. LIPITOR [Suspect]
     Indication: HYPERLIPIDAEMIA
     Dosage: 10 MG (DAILY), ORAL
     Route: 048
     Dates: start: 20030801, end: 20031101
  3. VALSARTAN (VALSARTAN) [Concomitant]
  4. OMEPRAZOLE [Concomitant]
  5. ACETYLSALICYLIC ACID SRT [Concomitant]
  6. MULTIVITAMIN [Concomitant]
  7. METOPROLOL SUCCINATE [Concomitant]
  8. GLIPIZIDE [Concomitant]

REACTIONS (18)
  - ASTHENIA [None]
  - BLOOD CREATININE INCREASED [None]
  - CONJUNCTIVAL HAEMORRHAGE [None]
  - DYSPNOEA [None]
  - DYSPNOEA EXERTIONAL [None]
  - DYSURIA [None]
  - ENTEROCOCCAL INFECTION [None]
  - EYE HAEMORRHAGE [None]
  - HYPERSENSITIVITY [None]
  - MICTURITION URGENCY [None]
  - NEPHRITIS INTERSTITIAL [None]
  - PAIN [None]
  - POLLAKIURIA [None]
  - RED BLOOD CELL SEDIMENTATION RATE INCREASED [None]
  - RENAL FAILURE ACUTE [None]
  - URINARY TRACT DISORDER [None]
  - VISUAL DISTURBANCE [None]
  - WHITE BLOOD CELLS URINE POSITIVE [None]
